FAERS Safety Report 10159178 (Version 1)
Quarter: 2014Q2

REPORT INFORMATION
  Report Type: Spontaneous
  Country: PR (occurrence: None)
  Receive Date: 20140507
  Receipt Date: 20140507
  Transmission Date: 20141212
  Serious: Yes (Other)
  Sender: FDA-Public Use
  Company Number: None

PATIENT
  Age: 7 Year
  Sex: Female
  Weight: 34 kg

DRUGS (7)
  1. TAMIFLU [Suspect]
     Indication: INFLUENZA
     Route: 048
     Dates: start: 20140502, end: 20140506
  2. ALBUTEROL SULFATE [Concomitant]
  3. INTESTINEX [Concomitant]
  4. NEBUSAL 6% [Concomitant]
  5. FAMOTIDINE [Concomitant]
  6. TRISPEC-PSE [Concomitant]
  7. ACETAMINOPHEN [Concomitant]

REACTIONS (2)
  - White blood cell count decreased [None]
  - Neutrophil count decreased [None]
